FAERS Safety Report 9153683 (Version 1)
Quarter: 2013Q1

REPORT INFORMATION
  Report Type: Spontaneous
  Country: US (occurrence: None)
  Receive Date: 20130306
  Receipt Date: 20130306
  Transmission Date: 20140127
  Serious: Yes (Other)
  Sender: FDA-Public Use
  Company Number: None

PATIENT
  Age: 61 Year
  Sex: Male
  Weight: 97.52 kg

DRUGS (3)
  1. SYMBYAX [Suspect]
     Dosage: 9AM     9PM
     Dates: start: 20130118, end: 20130214
  2. SYMBYAX [Suspect]
     Dosage: 9AM     9PM
     Dates: start: 20130118, end: 20130214
  3. SYMBYAX [Suspect]
     Dosage: 9AM     9PM
     Dates: start: 20130118, end: 20130214

REACTIONS (6)
  - Blister [None]
  - Eye infection [None]
  - Oropharyngeal pain [None]
  - Decreased appetite [None]
  - Anxiety [None]
  - Feeling abnormal [None]
